FAERS Safety Report 12892253 (Version 1)
Quarter: 2016Q4

REPORT INFORMATION
  Report Type: Spontaneous
  Country: US (occurrence: US)
  Receive Date: 20161026
  Receipt Date: 20161026
  Transmission Date: 20170207
  Serious: No
  Sender: FDA-Public Use
  Company Number: None

PATIENT
  Age: 75 Year
  Sex: Female

DRUGS (9)
  1. MIRTAZAPINE. [Concomitant]
     Active Substance: MIRTAZAPINE
  2. GABAPENTIN. [Concomitant]
     Active Substance: GABAPENTIN
  3. PANTOPRAZOLE [Concomitant]
     Active Substance: PANTOPRAZOLE SODIUM
  4. ACETAMINOPHEN-COIDEINE [Concomitant]
  5. NITROFURANTOIN. [Concomitant]
     Active Substance: NITROFURANTOIN
  6. ACYCLOVIR. [Concomitant]
     Active Substance: ACYCLOVIR
  7. REVLIMID [Suspect]
     Active Substance: LENALIDOMIDE
     Indication: PLASMA CELL MYELOMA
     Route: 048
     Dates: start: 20160901, end: 20160906
  8. HYDROCORTISONE. [Concomitant]
     Active Substance: HYDROCORTISONE
  9. DEXAMETHASONE. [Concomitant]
     Active Substance: DEXAMETHASONE

REACTIONS (1)
  - Rash [None]

NARRATIVE: CASE EVENT DATE: 20161026
